FAERS Safety Report 8781108 (Version 1)
Quarter: 2012Q4

REPORT INFORMATION
  Report Type: Report from Study
  Country: HU (occurrence: HU)
  Receive Date: 20120913
  Receipt Date: 20120913
  Transmission Date: 20130627
  Serious: Yes (Other)
  Sender: FDA-Public Use
  Company Number: HU-ROCHE-1123073

PATIENT
  Sex: Female

DRUGS (1)
  1. XELODA [Suspect]
     Indication: BREAST CANCER
     Dosage: 2 x 3 days
     Route: 048
     Dates: start: 20091215, end: 201003

REACTIONS (2)
  - Asthma [Unknown]
  - Therapeutic response unexpected [Unknown]
